FAERS Safety Report 6246072-3 (Version None)
Quarter: 2009Q2

REPORT INFORMATION
  Report Type: 
  Country: None (occurrence: None)
  Receive Date: 20090626
  Receipt Date: 20090127
  Transmission Date: 20091009
  Serious: No
  Sender: FDA-Public Use
  Company Number: A0765478A

PATIENT
  Sex: Female

DRUGS (27)
  1. IMITREX [Suspect]
     Indication: MIGRAINE
     Dosage: 100MG VARIABLE DOSE
     Route: 048
     Dates: start: 20030101
  2. TOPAMAX [Concomitant]
  3. ALENDRONATE [Concomitant]
  4. AMBIEN [Concomitant]
  5. VITAMIN B-12 [Concomitant]
  6. BUSPAR [Concomitant]
  7. RISPERDAL [Concomitant]
  8. CYMBALTA [Concomitant]
  9. DOCULACE [Concomitant]
  10. FAMOTIDINE [Concomitant]
  11. FERROUS SULFATE TAB [Concomitant]
  12. FLUTICASONE [Concomitant]
  13. FOLIC ACID [Concomitant]
  14. FUROSEMIDE [Concomitant]
  15. HUMALOG [Concomitant]
  16. HYDROCODONE BITARTRATE [Concomitant]
  17. LIDOCAINE HCL VISCOUS [Concomitant]
  18. LANTUS [Concomitant]
  19. LEVOTHYROXINE SODIUM [Concomitant]
  20. MELOXICAM [Concomitant]
  21. METOCLOPRAMIDE [Concomitant]
  22. MIDODRINE [Concomitant]
  23. NEURONTIN [Concomitant]
  24. OMEPRAZOLE [Concomitant]
  25. PROTONIX [Concomitant]
  26. REQUIP [Concomitant]
  27. TERBINAFINE HCL [Concomitant]

REACTIONS (2)
  - DRUG INEFFECTIVE [None]
  - MALABSORPTION [None]
